FAERS Safety Report 5418442-4 (Version None)
Quarter: 2007Q3

REPORT INFORMATION
  Report Type: 
  Country: None (occurrence: None)
  Receive Date: 20070817
  Receipt Date: 20070808
  Transmission Date: 20080115
  Serious: Yes (Hospitalization)
  Sender: FDA-Public Use
  Company Number: JP-AMGEN-US239090

PATIENT
  Sex: Male

DRUGS (7)
  1. ENBREL [Suspect]
     Indication: RHEUMATOID ARTHRITIS
     Route: 058
     Dates: start: 20061215, end: 20070606
  2. MEDROL [Suspect]
     Indication: RHEUMATOID ARTHRITIS
     Dosage: UNSPECIFIED
     Route: 048
  3. BREDININ [Suspect]
     Indication: RHEUMATOID ARTHRITIS
     Route: 048
  4. CLINORIL [Suspect]
     Indication: RHEUMATOID ARTHRITIS
     Dosage: UNSPECIFIED
     Route: 048
  5. ALOSENN [Concomitant]
     Dosage: UNSPECIFIED GRA
     Route: 048
  6. ISCOTIN [Concomitant]
     Dosage: UNSPECIFIED
     Route: 048
  7. BIOFERMIN [Concomitant]
     Dosage: UNSPECIFIED POW
     Route: 048

REACTIONS (3)
  - ANAEMIA [None]
  - CONDITION AGGRAVATED [None]
  - RENAL DISORDER [None]
